FAERS Safety Report 22002978 (Version 1)
Quarter: 2023Q1

REPORT INFORMATION
  Report Type: Spontaneous
  Country: PT (occurrence: PT)
  Receive Date: 20230217
  Receipt Date: 20230217
  Transmission Date: 20230418
  Serious: Yes (Hospitalization, Other)
  Sender: FDA-Public Use
  Company Number: PT-PBIPT-2023-0003

PATIENT
  Age: 19 Year
  Sex: Male

DRUGS (1)
  1. TRANEXAMIC ACID [Suspect]
     Active Substance: TRANEXAMIC ACID
     Indication: Product used for unknown indication
     Dosage: 250 MILLIGRAM (TOTAL)
     Route: 065

REACTIONS (9)
  - Tonic clonic movements [Recovered/Resolved]
  - Psychomotor retardation [Recovered/Resolved]
  - Supraventricular tachycardia [Recovered/Resolved]
  - Rash pruritic [Recovered/Resolved]
  - Hypertension [Recovered/Resolved]
  - Pruritus genital [Recovered/Resolved]
  - Erythema [Recovered/Resolved]
  - Perineal pain [Recovered/Resolved]
  - Accidental exposure to product [Recovered/Resolved]
